FAERS Safety Report 10871605 (Version 1)
Quarter: 2015Q1

REPORT INFORMATION
  Report Type: Spontaneous
  Country: CN (occurrence: CN)
  Receive Date: 20150226
  Receipt Date: 20150226
  Transmission Date: 20150721
  Serious: Yes (Hospitalization)
  Sender: FDA-Public Use
  Company Number: PHHY2015CN020496

PATIENT
  Age: 25 Year
  Sex: Male

DRUGS (4)
  1. CHLORPROMAZINE [Suspect]
     Active Substance: CHLORPROMAZINE
     Indication: PSYCHOTIC DISORDER
     Dosage: 50 MG, QD
     Route: 042
  2. ARIPIPRAZOLE. [Interacting]
     Active Substance: ARIPIPRAZOLE
     Indication: PSYCHOTIC DISORDER
     Route: 048
  3. CLONAZEPAM. [Concomitant]
     Active Substance: CLONAZEPAM
     Indication: INSOMNIA
     Dosage: 1 MG, AT NIGHT
     Route: 042
  4. VALPROATE MAGNESIUM [Concomitant]
     Active Substance: VALPROATE MAGNESIUM
     Indication: PRODUCT USED FOR UNKNOWN INDICATION
     Dosage: 250 MG, BID
     Route: 048

REACTIONS (10)
  - Salivary hypersecretion [Recovering/Resolving]
  - Drug withdrawal syndrome [Unknown]
  - Psychotic disorder [Recovering/Resolving]
  - Abnormal behaviour [Recovering/Resolving]
  - Disorientation [Recovering/Resolving]
  - Dissociation [Recovering/Resolving]
  - Tangentiality [Recovering/Resolving]
  - Delirium [Recovered/Resolved]
  - Psychomotor hyperactivity [Recovering/Resolving]
  - Hypertonia [Recovering/Resolving]
